FAERS Safety Report 23407152 (Version 1)
Quarter: 2024Q1

REPORT INFORMATION
  Report Type: Spontaneous
  Country: CA (occurrence: CA)
  Receive Date: 20240116
  Receipt Date: 20240116
  Transmission Date: 20240409
  Serious: Yes (Other)
  Sender: FDA-Public Use
  Company Number: CA-BAXTER-2024BAX010633

PATIENT
  Age: 43 Year
  Sex: Male

DRUGS (1)
  1. BUPIVACAINE [Suspect]
     Active Substance: BUPIVACAINE
     Indication: Orthopaedic procedure
     Dosage: (DOSAGE FORM: SOLUTION BLOCK/INFILTRATION) 10.5 MILLIGRAM ONCE
     Route: 037

REACTIONS (2)
  - Therapeutic response decreased [Recovered/Resolved]
  - Spinal anaesthesia [Recovered/Resolved]
